FAERS Safety Report 18794819 (Version 4)
Quarter: 2021Q4

REPORT INFORMATION
  Report Type: Report from Study
  Country: JP (occurrence: JP)
  Receive Date: 20210127
  Receipt Date: 20211021
  Transmission Date: 20220303
  Serious: Yes (Hospitalization, Other)
  Sender: FDA-Public Use
  Company Number: JP-ALNYLAM PHARMACEUTICALS, INC.-ALN-2020-000661

PATIENT

DRUGS (25)
  1. ONPATTRO [Suspect]
     Active Substance: PATISIRAN SODIUM
     Indication: Hereditary neuropathic amyloidosis
     Dosage: 17.6 MILLIGRAM
     Route: 041
     Dates: start: 20200410, end: 20210115
  2. ONPATTRO [Suspect]
     Active Substance: PATISIRAN SODIUM
     Indication: Amyloidosis senile
  3. DEXAMETHASONE SODIUM PHOSPHATE [Concomitant]
     Active Substance: DEXAMETHASONE SODIUM PHOSPHATE
     Indication: Prophylaxis
     Dosage: 9.9 MILLIGRAM, SINGLE
     Route: 041
     Dates: start: 20200410, end: 20210115
  4. POLARAMINE [Concomitant]
     Active Substance: DEXCHLORPHENIRAMINE MALEATE
     Indication: Prophylaxis
     Dosage: 5 MILLIGRAM, SINGLE
     Route: 041
     Dates: start: 20200410, end: 20210115
  5. FAMOTIDINE [Concomitant]
     Active Substance: FAMOTIDINE
     Indication: Prophylaxis
     Dosage: 20 MILLIGRAM, SINGLE
     Route: 041
     Dates: start: 20200410, end: 20210115
  6. CALONAL [Concomitant]
     Active Substance: ACETAMINOPHEN
     Indication: Prophylaxis
     Dosage: 500 MILLIGRAM, SINGLE
     Route: 048
     Dates: start: 20200410, end: 20210115
  7. SODIUM CHLORIDE [Concomitant]
     Active Substance: SODIUM CHLORIDE
     Indication: Premedication
     Dosage: 50 MILLILITER
     Route: 041
     Dates: end: 20200501
  8. ELIQUIS [Concomitant]
     Active Substance: APIXABAN
     Indication: Anticoagulant therapy
     Dosage: 2.5 MILLIGRAM, BID
     Route: 048
     Dates: end: 20210115
  9. ELIQUIS [Concomitant]
     Active Substance: APIXABAN
     Indication: Atrial fibrillation
  10. VITAMINS [Concomitant]
     Active Substance: VITAMINS
     Indication: Prophylaxis
     Dosage: 1 GRAM, QD
     Route: 065
     Dates: start: 20200410, end: 20210115
  11. DROXIDOPA [Concomitant]
     Active Substance: DROXIDOPA
     Indication: Hereditary neuropathic amyloidosis
     Dosage: 100 MILLIGRAM, BID
     Route: 065
     Dates: end: 20210215
  12. DROXIDOPA [Concomitant]
     Active Substance: DROXIDOPA
     Indication: Amyloidosis senile
  13. EPERISONE HYDROCHLORIDE [Concomitant]
     Active Substance: EPERISONE HYDROCHLORIDE
     Indication: Hereditary neuropathic amyloidosis
     Dosage: 50 MILLIGRAM, TID
     Route: 065
     Dates: end: 20210215
  14. EPERISONE HYDROCHLORIDE [Concomitant]
     Active Substance: EPERISONE HYDROCHLORIDE
     Indication: Amyloidosis senile
  15. LYRICA [Concomitant]
     Active Substance: PREGABALIN
     Indication: Hereditary neuropathic amyloidosis
     Dosage: 25 MILLIGRAM, QD
     Route: 065
     Dates: end: 20210215
  16. LYRICA [Concomitant]
     Active Substance: PREGABALIN
     Indication: Amyloidosis senile
  17. METHYLCOBALAMIN [Concomitant]
     Active Substance: METHYLCOBALAMIN
     Indication: Hereditary neuropathic amyloidosis
     Dosage: 0.5 MILLIGRAM, TID
     Route: 065
     Dates: end: 20210215
  18. METHYLCOBALAMIN [Concomitant]
     Active Substance: METHYLCOBALAMIN
     Indication: Amyloidosis senile
  19. SPIRONOLACTONE [Concomitant]
     Active Substance: SPIRONOLACTONE
     Indication: Hereditary neuropathic amyloidosis
     Dosage: 25 MILLIGRAM, QD
     Route: 065
     Dates: end: 20210215
  20. SPIRONOLACTONE [Concomitant]
     Active Substance: SPIRONOLACTONE
     Indication: Amyloidosis senile
  21. LASIX [Concomitant]
     Active Substance: FUROSEMIDE
     Indication: Hereditary neuropathic amyloidosis
     Dosage: 40 MILLIGRAM, QD
     Route: 065
     Dates: end: 20210215
  22. LASIX [Concomitant]
     Active Substance: FUROSEMIDE
     Indication: Amyloidosis senile
  23. LEVETIRACETAM [Concomitant]
     Active Substance: LEVETIRACETAM
     Indication: Seizure prophylaxis
     Dosage: 500 MILLIGRAM, BID
     Route: 065
     Dates: start: 20210116, end: 20210215
  24. NIFEDIPINE [Concomitant]
     Active Substance: NIFEDIPINE
     Indication: Hypertension
     Dosage: 40 MILLIGRAM, QD
     Route: 065
     Dates: start: 20210118, end: 20210215
  25. EDOXABAN TOSYLATE [Concomitant]
     Active Substance: EDOXABAN TOSYLATE
     Indication: Atrial fibrillation
     Dosage: 30 MILLIGRAM, QD
     Route: 065
     Dates: start: 20210211, end: 20210215

REACTIONS (8)
  - Cerebral haemorrhage [Recovering/Resolving]
  - Infusion related reaction [Recovering/Resolving]
  - Sacral pain [Recovering/Resolving]
  - Infusion related reaction [Recovering/Resolving]
  - Back pain [Recovering/Resolving]
  - Infusion related reaction [Recovering/Resolving]
  - Back pain [Recovering/Resolving]
  - Pyrexia [Recovered/Resolved]

NARRATIVE: CASE EVENT DATE: 20200501
